FAERS Safety Report 15729223 (Version 4)
Quarter: 2019Q4

REPORT INFORMATION
  Report Type: Report from Study
  Country: IT (occurrence: IT)
  Receive Date: 20181217
  Receipt Date: 20191114
  Transmission Date: 20200122
  Serious: Yes (Life-Threatening, Hospitalization, Other)
  Sender: FDA-Public Use
  Company Number: IT-INCYTE CORPORATION-2018IN000258

PATIENT

DRUGS (13)
  1. CLOPIDOGREL [Concomitant]
     Active Substance: CLOPIDOGREL BISULFATE
     Indication: CORONARY ANGIOPLASTY
     Dosage: 75 MG, UNK
     Route: 065
  2. JAKAVI [Suspect]
     Active Substance: RUXOLITINIB
     Dosage: 20 OT
     Route: 065
     Dates: start: 20190708
  3. CLOPIDOGREL [Concomitant]
     Active Substance: CLOPIDOGREL BISULFATE
     Indication: STENT PLACEMENT
  4. JAKAVI [Suspect]
     Active Substance: RUXOLITINIB
     Dosage: 15 OT, DAILY
     Route: 065
     Dates: start: 20190305, end: 20190707
  5. PREGABALIN. [Concomitant]
     Active Substance: PREGABALIN
     Indication: NEUROPATHY PERIPHERAL
     Dosage: 300 MG, UNK
     Route: 065
     Dates: start: 201809, end: 201810
  6. JAKAVI [Suspect]
     Active Substance: RUXOLITINIB
     Indication: MYELOFIBROSIS
     Dosage: 10 OT, DAILY
     Route: 065
     Dates: start: 20171024, end: 20171120
  7. JAKAVI [Suspect]
     Active Substance: RUXOLITINIB
     Dosage: 10 OT, DAILY
     Route: 065
     Dates: start: 20180903, end: 20181001
  8. JAKAVI [Suspect]
     Active Substance: RUXOLITINIB
     Dosage: 15 OT, DAILY
     Route: 065
     Dates: start: 20171121, end: 20180502
  9. JAKAVI [Suspect]
     Active Substance: RUXOLITINIB
     Dosage: 15 OT, DAILY
     Route: 065
     Dates: start: 20180706, end: 20180902
  10. JAKAVI [Suspect]
     Active Substance: RUXOLITINIB
     Dosage: 10 OT, DAILY
     Route: 065
     Dates: start: 20181105, end: 20190304
  11. ASA [Concomitant]
     Active Substance: ASPIRIN
     Indication: ACUTE MYOCARDIAL INFARCTION
     Dosage: 100 MG, UNK
     Route: 065
     Dates: start: 20171024
  12. JAKAVI [Suspect]
     Active Substance: RUXOLITINIB
     Dosage: 10 OT, DAILY
     Route: 065
     Dates: start: 20180503, end: 20180705
  13. JAKAVI [Suspect]
     Active Substance: RUXOLITINIB
     Dosage: 5 OT, DAILY
     Route: 065
     Dates: start: 20181002, end: 20181104

REACTIONS (20)
  - Constipation [Unknown]
  - Acute myocardial infarction [Recovered/Resolved with Sequelae]
  - Thrombocytopenia [Not Recovered/Not Resolved]
  - Anaemia [Unknown]
  - Chest discomfort [Unknown]
  - Dyspnoea [Unknown]
  - Pyrexia [Unknown]
  - Headache [Unknown]
  - Herpes zoster [Recovered/Resolved with Sequelae]
  - Syncope [Recovered/Resolved]
  - Nausea [Unknown]
  - Asthenia [Unknown]
  - Blood potassium increased [Unknown]
  - Injury [Unknown]
  - Bronchitis [Unknown]
  - Blood creatinine increased [Unknown]
  - Limb injury [Unknown]
  - Anxiety [Unknown]
  - Meningitis aseptic [Recovered/Resolved with Sequelae]
  - Tachycardia [Unknown]

NARRATIVE: CASE EVENT DATE: 20171121
